FAERS Safety Report 18520313 (Version 2)
Quarter: 2022Q2

REPORT INFORMATION
  Report Type: Other
  Country: GB (occurrence: None)
  Receive Date: 20201118
  Receipt Date: 20220624
  Transmission Date: 20220721
  Serious: Yes (Hospitalization)
  Sender: FDA-Public Use
  Company Number: GB-ROCHE-2712196

PATIENT
  Sex: Female

DRUGS (4)
  1. TOCILIZUMAB [Suspect]
     Active Substance: TOCILIZUMAB
     Indication: Rheumatoid arthritis
     Route: 058
     Dates: start: 20181215
  2. METHOTREXATE [Concomitant]
     Active Substance: METHOTREXATE
  3. GABAPENTIN [Concomitant]
     Active Substance: GABAPENTIN
  4. NAPROXEN [Concomitant]
     Active Substance: NAPROXEN

REACTIONS (4)
  - Cardiac disorder [Unknown]
  - Heart rate increased [Unknown]
  - Rheumatoid arthritis [Unknown]
  - Uterine prolapse [Unknown]
